FAERS Safety Report 7727661-3 (Version None)
Quarter: 2011Q3

REPORT INFORMATION
  Report Type: 
  Country: None (occurrence: None)
  Receive Date: 20110902
  Receipt Date: 20110824
  Transmission Date: 20111222
  Serious: Yes (Hospitalization)
  Sender: FDA-Public Use
  Company Number: US-UCBSA-040118

PATIENT
  Sex: Female
  Weight: 56.818 kg

DRUGS (2)
  1. KEPPRA [Suspect]
     Indication: CONVULSION
     Route: 048
     Dates: start: 20060101
  2. LAMICTAL [Concomitant]
     Indication: CONVULSION
     Route: 048
     Dates: start: 20060101

REACTIONS (3)
  - PHARYNGEAL OEDEMA [None]
  - LIP SWELLING [None]
  - DYSPNOEA [None]
